FAERS Safety Report 11010832 (Version 1)
Quarter: 2015Q2

REPORT INFORMATION
  Report Type: Spontaneous
  Country: FR (occurrence: FR)
  Receive Date: 20150410
  Receipt Date: 20150410
  Transmission Date: 20150821
  Serious: Yes (Hospitalization, Other)
  Sender: FDA-Public Use
  Company Number: FR-ELI_LILLY_AND_COMPANY-FR201503010566

PATIENT
  Age: 50 Year
  Sex: Male

DRUGS (8)
  1. AERIUS [Concomitant]
     Active Substance: DESLORATADINE
     Dosage: UNK, UNKNOWN
     Route: 065
  2. GARDENAL                           /00023201/ [Concomitant]
     Active Substance: PHENOBARBITAL
     Dosage: UNK, UNKNOWN
     Route: 065
  3. IMOVANE [Suspect]
     Active Substance: ZOPICLONE
     Indication: DEPRESSION
     Dosage: 2 DF, QD
     Route: 048
     Dates: start: 20141202, end: 20150112
  4. NORSET [Concomitant]
     Active Substance: MIRTAZAPINE
     Indication: DEPRESSION
     Dosage: 15 MG, BID
     Route: 065
     Dates: start: 20141202
  5. TIAPRIDAL                          /00435702/ [Suspect]
     Active Substance: TIAPRIDE HYDROCHLORIDE
     Indication: DEPRESSION
     Dosage: 0.5 DF, BID
     Route: 048
     Dates: start: 20141216, end: 20150112
  6. TIAPRIDAL                          /00435702/ [Suspect]
     Active Substance: TIAPRIDE HYDROCHLORIDE
     Dosage: 1 DF, QD
     Route: 048
     Dates: start: 20141216, end: 20150112
  7. PROZAC [Suspect]
     Active Substance: FLUOXETINE HYDROCHLORIDE
     Indication: DEPRESSION
     Dosage: 20 MG, QD
     Route: 048
     Dates: start: 20141216, end: 20150112
  8. ATARAX [Suspect]
     Active Substance: HYDROXYZINE\HYDROXYZINE HYDROCHLORIDE
     Indication: DEPRESSION
     Dosage: 25 MG, TID
     Route: 048
     Dates: start: 20141203, end: 20150112

REACTIONS (18)
  - Hypothermia [Recovered/Resolved]
  - Fall [Unknown]
  - Dermatitis exfoliative [Unknown]
  - Disorientation [Recovered/Resolved]
  - Bradycardia [Recovered/Resolved]
  - Confusional state [Recovered/Resolved]
  - Nystagmus [Unknown]
  - Eyelid ptosis [Unknown]
  - Hypotension [Recovered/Resolved]
  - Headache [Unknown]
  - Dysarthria [Recovered/Resolved]
  - Xerosis [Unknown]
  - Nervous system disorder [Recovered/Resolved]
  - Toxic skin eruption [Recovered/Resolved]
  - Arrhythmia [Recovered/Resolved]
  - Balance disorder [Recovered/Resolved]
  - Electrocardiogram QT prolonged [Recovered/Resolved]
  - Skin induration [Unknown]

NARRATIVE: CASE EVENT DATE: 20150108
